FAERS Safety Report 26163822 (Version 1)
Quarter: 2025Q4

REPORT INFORMATION
  Report Type: Spontaneous
  Country: EU (occurrence: EU)
  Receive Date: 20251216
  Receipt Date: 20251216
  Transmission Date: 20260117
  Serious: Yes (Disabling, Other)
  Sender: PFIZER
  Company Number: None

PATIENT
  Age: 77 Year
  Sex: Female
  Weight: 60 kg

DRUGS (1)
  1. DOCETAXEL [Suspect]
     Active Substance: DOCETAXEL
     Indication: Breast cancer
     Dosage: 1 DF, CYCLIC
     Route: 042
     Dates: start: 20160401, end: 20160601

REACTIONS (5)
  - Laryngeal tremor [Not Recovered/Not Resolved]
  - Cataract [Unknown]
  - Type 2 diabetes mellitus [Unknown]
  - Meningioma [Unknown]
  - Essential tremor [Unknown]

NARRATIVE: CASE EVENT DATE: 20200101
